FAERS Safety Report 4932987-2 (Version None)
Quarter: 2006Q1

REPORT INFORMATION
  Report Type: 
  Country: None (occurrence: None)
  Receive Date: 20060302
  Receipt Date: 20060302
  Transmission Date: 20060701
  Serious: Yes (Hospitalization, Other)
  Sender: FDA-Public Use
  Company Number: None

PATIENT
  Age: 77 Year
  Sex: Male

DRUGS (13)
  1. REQUIP [Suspect]
     Indication: PARKINSON'S DISEASE
     Dosage: 25MG  2 TABS TID (THERAPY DATES: PRIOR TO ADMISSION)
  2. SINEMET [Concomitant]
  3. ZOCOR [Concomitant]
  4. COMTAN [Concomitant]
  5. NORCO [Concomitant]
  6. HYZAAR [Concomitant]
  7. K-DUR 10 [Concomitant]
  8. ZYPREXA [Concomitant]
  9. BACLOFEN [Concomitant]
  10. KLONOPIN [Concomitant]
  11. NEURONTIN [Concomitant]
  12. FLEXERIL [Concomitant]
  13. OXYTROL [Concomitant]

REACTIONS (3)
  - CONDITION AGGRAVATED [None]
  - HALLUCINATION, AUDITORY [None]
  - HALLUCINATION, VISUAL [None]
